FAERS Safety Report 7938630-2 (Version None)
Quarter: 2011Q4

REPORT INFORMATION
  Report Type: 
  Country: None (occurrence: None)
  Receive Date: 20111123
  Receipt Date: 20111121
  Transmission Date: 20120403
  Serious: Yes (Disabling)
  Sender: FDA-Public Use
  Company Number: US-MERCK-1111USA03005

PATIENT

DRUGS (2)
  1. FOSAMAX [Suspect]
     Route: 048
     Dates: start: 20060101, end: 20090101
  2. BONIVA [Suspect]
     Route: 048
     Dates: start: 20100101, end: 20110301

REACTIONS (1)
  - FEMUR FRACTURE [None]
